FAERS Safety Report 23749082 (Version 1)
Quarter: 2024Q2

REPORT INFORMATION
  Report Type: Spontaneous
  Country: AU (occurrence: AU)
  Receive Date: 20240416
  Receipt Date: 20240416
  Transmission Date: 20240716
  Serious: Yes (Other)
  Sender: FDA-Public Use
  Company Number: AU-BRISTOL-MYERS SQUIBB COMPANY-2024-055556

PATIENT
  Age: 81 Year
  Sex: Male

DRUGS (3)
  1. AZACITIDINE [Suspect]
     Active Substance: AZACITIDINE
     Indication: Product used for unknown indication
  2. AZACITIDINE [Suspect]
     Active Substance: AZACITIDINE
     Dates: start: 202306
  3. INQOVI [Suspect]
     Active Substance: CEDAZURIDINE\DECITABINE
     Indication: Product used for unknown indication
     Route: 048
     Dates: start: 202304, end: 202306

REACTIONS (2)
  - Pancytopenia [Unknown]
  - Chronic myelomonocytic leukaemia [Unknown]
